FAERS Safety Report 7701722-7 (Version None)
Quarter: 2011Q3

REPORT INFORMATION
  Report Type: 
  Country: None (occurrence: None)
  Receive Date: 20110822
  Receipt Date: 20110815
  Transmission Date: 20111222
  Serious: Yes (Other)
  Sender: FDA-Public Use
  Company Number: US-BAYER-201042053NA

PATIENT
  Age: 29 Year
  Sex: Female
  Weight: 95.238 kg

DRUGS (7)
  1. YAZ [Suspect]
     Indication: CONTRACEPTION
     Dosage: UNK UNK, QD
     Route: 048
     Dates: start: 20070101, end: 20090201
  2. NAPROXEN [Concomitant]
     Dosage: 500 MG, UNK
  3. HYZAAR [Concomitant]
     Dosage: UNK UNK, QD
     Dates: start: 20081120
  4. OXAPROZIN [Concomitant]
     Dosage: 600 MG, UNK
  5. CARAFATE [Concomitant]
     Dosage: UNK UNK, TID
     Dates: start: 20081120
  6. BENTYL [Concomitant]
     Dosage: UNK UNK, TID
     Dates: start: 20081120
  7. NEXIUM [Concomitant]
     Dosage: UNK
     Dates: start: 20081120

REACTIONS (2)
  - HEMIPLEGIA [None]
  - TRANSIENT ISCHAEMIC ATTACK [None]
